FAERS Safety Report 5346165-9 (Version None)
Quarter: 2007Q2

REPORT INFORMATION
  Report Type: 
  Country: None (occurrence: None)
  Receive Date: 20070605
  Receipt Date: 20070529
  Transmission Date: 20071010
  Serious: Yes (Other)
  Sender: FDA-Public Use
  Company Number: TR-JNJFOC-20070506704

PATIENT
  Age: 36 Year
  Sex: Female

DRUGS (3)
  1. RISPERDAL [Suspect]
     Indication: PSYCHOTIC DISORDER
  2. RISPERDAL [Suspect]
     Indication: DEPRESSION
  3. EFFEXOR [Suspect]
     Indication: DEPRESSION

REACTIONS (2)
  - ERYTHEMA [None]
  - RASH MACULAR [None]
